FAERS Safety Report 9312660 (Version 1)
Quarter: 2013Q2

REPORT INFORMATION
  Report Type: Spontaneous
  Country: FR (occurrence: FR)
  Receive Date: 20130528
  Receipt Date: 20130528
  Transmission Date: 20140414
  Serious: Yes (Disabling, Other)
  Sender: FDA-Public Use
  Company Number: FR-JNJFOC-20130509755

PATIENT
  Age: 63 Year
  Sex: Female
  Weight: 64 kg

DRUGS (2)
  1. INTELENCE [Suspect]
     Indication: HIV INFECTION
     Route: 048
     Dates: start: 20111101, end: 20120223
  2. TRUVADA [Concomitant]
     Indication: HIV INFECTION
     Dosage: 200/245
     Route: 048
     Dates: start: 20091027

REACTIONS (6)
  - Rhinitis [Recovered/Resolved]
  - Asthma [Recovered/Resolved]
  - Dyspnoea exertional [Recovering/Resolving]
  - Obstructive airways disorder [Recovering/Resolving]
  - Bronchospasm [Recovering/Resolving]
  - Weight increased [Recovered/Resolved]
